FAERS Safety Report 6156783-6 (Version None)
Quarter: 2009Q2

REPORT INFORMATION
  Report Type: 
  Country: None (occurrence: None)
  Receive Date: 20090416
  Receipt Date: 20090408
  Transmission Date: 20091009
  Serious: Yes (Hospitalization)
  Sender: FDA-Public Use
  Company Number: PHHY2009JP09545

PATIENT
  Sex: Female

DRUGS (3)
  1. DIOVAN [Suspect]
     Dosage: 80 MG, ONCE DAILY
     Route: 048
     Dates: start: 20070921, end: 20080811
  2. ADALAT CC [Concomitant]
     Indication: HYPERTENSION
     Dosage: UNK
     Route: 048
     Dates: start: 20070921, end: 20080811
  3. PROTECADIN [Concomitant]
     Dosage: 10 MG, UNK
     Route: 048
     Dates: start: 20070921, end: 20080811

REACTIONS (2)
  - CONTUSION [None]
  - FALL [None]
